FAERS Safety Report 12316956 (Version 1)
Quarter: 2016Q2

REPORT INFORMATION
  Report Type: Spontaneous
  Country: US (occurrence: None)
  Receive Date: 20160428
  Receipt Date: 20160428
  Transmission Date: 20160815
  Serious: Yes (Disabling)
  Sender: FDA-Public Use
  Company Number: None

PATIENT
  Age: 58 Year
  Sex: Female
  Weight: 69.4 kg

DRUGS (12)
  1. ATORVASTATIN [Concomitant]
     Active Substance: ATORVASTATIN
  2. SUMATRIPTAN. [Concomitant]
     Active Substance: SUMATRIPTAN
  3. MOTRIN [Concomitant]
     Active Substance: IBUPROFEN
  4. ZINC [Concomitant]
     Active Substance: ZINC\ZINC CHLORIDE
  5. B STRESS [Concomitant]
  6. RESTASIS [Concomitant]
     Active Substance: CYCLOSPORINE
  7. MVI [Concomitant]
     Active Substance: VITAMINS
  8. RALOXIFENE. [Concomitant]
     Active Substance: RALOXIFENE
  9. TYLENOL [Concomitant]
     Active Substance: ACETAMINOPHEN
  10. BOTOX [Suspect]
     Active Substance: ONABOTULINUMTOXINA
     Indication: MIGRAINE
     Dosage: 2 VIALS, 100 MG. EACH INJECTED EVERY 3 MONTHS INJECTION
     Dates: start: 2011, end: 20151022
  11. TAMSULOSIN [Concomitant]
     Active Substance: TAMSULOSIN
  12. CALCIUM WITH D [Concomitant]
     Active Substance: CALCIUM\VITAMIN D

REACTIONS (10)
  - Headache [None]
  - Swelling face [None]
  - Impulsive behaviour [None]
  - Aphasia [None]
  - Impaired driving ability [None]
  - Disorientation [None]
  - Depressed level of consciousness [None]
  - Illiteracy [None]
  - Memory impairment [None]
  - Electroencephalogram abnormal [None]

NARRATIVE: CASE EVENT DATE: 20151022
